FAERS Safety Report 5543341-7 (Version None)
Quarter: 2007Q4

REPORT INFORMATION
  Report Type: 
  Country: None (occurrence: None)
  Receive Date: 20071206
  Receipt Date: 20071129
  Transmission Date: 20080405
  Serious: Yes (Other)
  Sender: FDA-Public Use
  Company Number: 2007-05417

PATIENT
  Age: 74 Year
  Sex: Male

DRUGS (7)
  1. FLUOROURACIL [Suspect]
     Indication: OESOPHAGEAL ADENOCARCINOMA
     Dates: start: 20070101, end: 20070101
  2. ETOPOSIDE [Suspect]
     Indication: OESOPHAGEAL ADENOCARCINOMA
     Dates: start: 20070101, end: 20070101
  3. MITOMYCIN [Suspect]
     Indication: OESOPHAGEAL ADENOCARCINOMA
     Dates: start: 20070101, end: 20070101
  4. PROLEUKIN [Suspect]
     Indication: OESOPHAGEAL ADENOCARCINOMA
     Dates: start: 20070101, end: 20070101
  5. EPIRUBICIN [Suspect]
     Indication: OESOPHAGEAL ADENOCARCINOMA
     Dates: start: 20070101, end: 20070101
  6. METHOTREXATE [Suspect]
     Indication: OESOPHAGEAL ADENOCARCINOMA
     Dates: start: 20070101, end: 20070101
  7. LEUCOVORIN CALCIUM [Concomitant]

REACTIONS (1)
  - MYELODYSPLASTIC SYNDROME [None]
